FAERS Safety Report 20736102 (Version 1)
Quarter: 2022Q2

REPORT INFORMATION
  Report Type: Spontaneous
  Country: US (occurrence: None)
  Receive Date: 20220421
  Receipt Date: 20220421
  Transmission Date: 20220721
  Serious: Yes (unspecified)
  Sender: FDA-Public Use
  Company Number: None

PATIENT
  Age: 58 Year
  Sex: Female
  Weight: 86.85 kg

DRUGS (1)
  1. QULIPTA [Suspect]
     Active Substance: ATOGEPANT
     Indication: Migraine
     Route: 048
     Dates: start: 20220413, end: 20220418

REACTIONS (5)
  - Nausea [None]
  - Abdominal discomfort [None]
  - Feeding disorder [None]
  - Pelvic discomfort [None]
  - Pain [None]

NARRATIVE: CASE EVENT DATE: 20220417
